FAERS Safety Report 18578222 (Version 1)
Quarter: 2020Q4

REPORT INFORMATION
  Report Type: Report from Study
  Country: DE (occurrence: DE)
  Receive Date: 20201204
  Receipt Date: 20201204
  Transmission Date: 20210114
  Serious: Yes (Other)
  Sender: FDA-Public Use
  Company Number: DE-TEVA-2020-DE-1854386

PATIENT
  Age: 77 Year
  Sex: Male

DRUGS (13)
  1. ESBRIET [Suspect]
     Active Substance: PIRFENIDONE
     Dosage: 801 MG
     Route: 048
     Dates: start: 20160701
  2. METFORMIN [Concomitant]
     Active Substance: METFORMIN HYDROCHLORIDE
     Dosage: 500 MG
     Route: 065
  3. RAMIPRIL. [Concomitant]
     Active Substance: RAMIPRIL
  4. CLOPIDOGREL [Concomitant]
     Active Substance: CLOPIDOGREL BISULFATE
     Dosage: 75 MG
     Route: 065
  5. TORASEMID [Concomitant]
     Active Substance: TORSEMIDE
     Dosage: 2.5 MG
     Route: 065
  6. FALITHROM [Concomitant]
     Active Substance: PHENPROCOUMON
  7. MORPHINE [Suspect]
     Active Substance: MORPHINE
     Indication: SPINAL PAIN
     Route: 065
  8. ESBRIET [Suspect]
     Active Substance: PIRFENIDONE
     Dosage: 2403 MILLIGRAM DAILY;
     Route: 048
     Dates: start: 201707
  9. ESBRIET [Suspect]
     Active Substance: PIRFENIDONE
     Dosage: 2403 MILLIGRAM DAILY;
     Route: 048
     Dates: start: 20160701
  10. AMLODIPIN [Concomitant]
     Active Substance: AMLODIPINE BESYLATE
     Dosage: 5 MG
  11. ESBRIET [Suspect]
     Active Substance: PIRFENIDONE
     Indication: IDIOPATHIC PULMONARY FIBROSIS
     Dosage: 3 DOSAGE FORM
     Route: 048
     Dates: start: 20160718
  12. ESBRIET [Suspect]
     Active Substance: PIRFENIDONE
     Dosage: 2403 MG
     Route: 065
     Dates: start: 20160701
  13. ESBRIET [Suspect]
     Active Substance: PIRFENIDONE
     Dosage: 801 MG
     Route: 048
     Dates: start: 201707

REACTIONS (11)
  - Coronary artery stenosis [Unknown]
  - Haematoma [Recovered/Resolved]
  - Dyspepsia [Recovered/Resolved]
  - International normalised ratio decreased [Recovered/Resolved]
  - Spinal pain [Not Recovered/Not Resolved]
  - Prothrombin time prolonged [Unknown]
  - Abdominal discomfort [Recovered/Resolved]
  - Feeling abnormal [Recovered/Resolved]
  - Dyspepsia [Unknown]
  - Dyspnoea exertional [Not Recovered/Not Resolved]
  - Gastrooesophageal reflux disease [Not Recovered/Not Resolved]

NARRATIVE: CASE EVENT DATE: 201608
